FAERS Safety Report 12633933 (Version 1)
Quarter: 2016Q3

REPORT INFORMATION
  Report Type: Spontaneous
  Country: US (occurrence: None)
  Receive Date: 20160808
  Receipt Date: 20160808
  Transmission Date: 20161109
  Serious: Yes (Hospitalization)
  Sender: FDA-Public Use
  Company Number: None

PATIENT
  Age: 68 Year
  Sex: Male
  Weight: 156.4 kg

DRUGS (1)
  1. LITHIUM. [Suspect]
     Active Substance: LITHIUM
     Indication: BIPOLAR I DISORDER
     Route: 048
     Dates: start: 20151030, end: 20160201

REACTIONS (5)
  - Inappropriate schedule of drug administration [None]
  - Dysarthria [None]
  - Tremor [None]
  - Toxicity to various agents [None]
  - Mental status changes [None]

NARRATIVE: CASE EVENT DATE: 20160201
